FAERS Safety Report 8756123 (Version 1)
Quarter: 2012Q4

REPORT INFORMATION
  Report Type: 
  Country: US (occurrence: US)
  Receive Date: 20120828
  Receipt Date: 20120828
  Transmission Date: 20130627
  Serious: No
  Sender: FDA-Public Use
  Company Number: US-PFIZER INC-2012207788

PATIENT
  Sex: Female

DRUGS (2)
  1. ADVIL [Suspect]
     Indication: MYALGIA
     Dosage: UNK
  2. ADVIL [Suspect]
     Indication: BACK PAIN

REACTIONS (2)
  - Drug ineffective [Unknown]
  - Rash macular [Unknown]
